FAERS Safety Report 6133050-8 (Version None)
Quarter: 2009Q1

REPORT INFORMATION
  Report Type: 
  Country: None (occurrence: None)
  Receive Date: 20090326
  Receipt Date: 20090316
  Transmission Date: 20090719
  Serious: Yes (Hospitalization)
  Sender: FDA-Public Use
  Company Number: JP-AMGEN-US336542

PATIENT
  Sex: Female
  Weight: 43 kg

DRUGS (5)
  1. ENBREL [Suspect]
     Indication: RHEUMATOID ARTHRITIS
     Route: 058
     Dates: start: 20080414, end: 20090119
  2. RHEUMATREX [Suspect]
     Indication: RHEUMATOID ARTHRITIS
     Dosage: 2MG
     Route: 048
  3. PREDNISOLONE [Suspect]
     Indication: RHEUMATOID ARTHRITIS
     Route: 048
  4. CALCITRIOL [Concomitant]
     Indication: OSTEOPOROSIS
     Route: 048
  5. TAKEPRON [Concomitant]
     Indication: REFLUX OESOPHAGITIS
     Route: 048

REACTIONS (3)
  - CONDITION AGGRAVATED [None]
  - EOSINOPHILIC PNEUMONIA [None]
  - RHEUMATOID ARTHRITIS [None]
